FAERS Safety Report 9998999 (Version 1)
Quarter: 2014Q1

REPORT INFORMATION
  Report Type: Spontaneous
  Country: US (occurrence: None)
  Receive Date: 20140311
  Receipt Date: 20140311
  Transmission Date: 20141002
  Serious: Yes (Life-Threatening)
  Sender: FDA-Public Use
  Company Number: None

PATIENT
  Age: 63 Year
  Sex: Female
  Weight: 70.76 kg

DRUGS (1)
  1. ANTIVERT [Suspect]
     Indication: DIZZINESS
     Dosage: .5 TO 1 TABLET THREE TIMES DAILY
     Route: 048
     Dates: start: 20140307, end: 20140307

REACTIONS (3)
  - Headache [None]
  - Chest discomfort [None]
  - Paraesthesia [None]
